FAERS Safety Report 11426418 (Version 1)
Quarter: 2015Q3

REPORT INFORMATION
  Report Type: Spontaneous
  Country: US (occurrence: US)
  Receive Date: 20150821
  Receipt Date: 20150821
  Transmission Date: 20151125
  Serious: No
  Sender: FDA-Public Use
  Company Number: US-ELI_LILLY_AND_COMPANY-US201306001516

PATIENT
  Sex: Male

DRUGS (1)
  1. CIALIS [Suspect]
     Active Substance: TADALAFIL
     Indication: ERECTILE DYSFUNCTION
     Dosage: 2.5 MG, QD
     Dates: start: 20130601

REACTIONS (5)
  - Neuralgia [Unknown]
  - Arthralgia [Unknown]
  - Myalgia [Unknown]
  - Carpal tunnel syndrome [Unknown]
  - Peripheral swelling [Unknown]
